FAERS Safety Report 12287018 (Version 1)
Quarter: 2016Q2

REPORT INFORMATION
  Report Type: Spontaneous
  Country: FR (occurrence: FR)
  Receive Date: 20160420
  Receipt Date: 20160420
  Transmission Date: 20160815
  Serious: Yes (Life-Threatening, Hospitalization)
  Sender: FDA-Public Use
  Company Number: FR-PFIZER INC-2016214969

PATIENT
  Age: 3 Year
  Sex: Female
  Weight: 17 kg

DRUGS (3)
  1. CELESTENE /00008502/ [Interacting]
     Active Substance: BETAMETHASONE SODIUM PHOSPHATE
     Indication: ASTHMA
     Dosage: 80 MG, 2X/DAY
     Dates: start: 20160324, end: 20160325
  2. DEBRIDAT /00465202/ [Concomitant]
     Indication: ABDOMINAL PAIN
  3. ADVILMED ENFANTS ET NOURRISSONS [Suspect]
     Active Substance: IBUPROFEN
     Indication: ABDOMINAL PAIN
     Dosage: 1 DF, 1X/DAY, AS NEEDED
     Route: 048
     Dates: start: 20160322, end: 20160324

REACTIONS (2)
  - Drug interaction [Recovered/Resolved]
  - Pneumonia [Recovered/Resolved]

NARRATIVE: CASE EVENT DATE: 201603
